FAERS Safety Report 6123584-4 (Version None)
Quarter: 2009Q1

REPORT INFORMATION
  Report Type: 
  Country: None (occurrence: None)
  Receive Date: 20090317
  Receipt Date: 20090317
  Transmission Date: 20090719
  Serious: Yes (Other)
  Sender: FDA-Public Use
  Company Number: None

PATIENT
  Sex: Female
  Weight: 58.514 kg

DRUGS (4)
  1. ESTRADIOL [Suspect]
     Indication: HYSTERECTOMY
  2. OGEN [Suspect]
  3. ENJUVIA [Suspect]
  4. PREMARIN [Suspect]

REACTIONS (1)
  - MIGRAINE [None]
